FAERS Safety Report 8534017 (Version 2)
Quarter: 2012Q4

REPORT INFORMATION
  Report Type: 
  Country: US (occurrence: US)
  Receive Date: 20120427
  Receipt Date: 20120830
  Transmission Date: 20130627
  Serious: Yes (Hospitalization)
  Sender: FDA-Public Use
  Company Number: US-ELI_LILLY_AND_COMPANY-US201012001918

PATIENT
  Sex: Female
  Weight: 55.78 kg

DRUGS (11)
  1. FORTEO [Suspect]
     Indication: OSTEOPOROSIS
     Dosage: 20 ug, qd
     Route: 058
     Dates: start: 20100608
  2. FORTEO [Suspect]
     Dosage: 20 ug, qd
     Route: 058
  3. FORTEO [Suspect]
     Dosage: 20 ug, qd
     Route: 058
  4. FORTEO [Suspect]
     Dosage: 20 ug, qd
     Route: 058
  5. FORTEO [Suspect]
     Dosage: 20 ug, qd
     Route: 058
  6. FORTEO [Suspect]
     Dosage: 20 ug, qd
     Route: 058
  7. FORTEO [Suspect]
     Dosage: 20 ug, qd
     Route: 058
  8. FORTEO [Suspect]
     Dosage: 20 ug, qd
     Route: 058
  9. FORTEO [Suspect]
     Dosage: 20 ug, qd
     Route: 058
  10. ASPIRIN [Concomitant]
  11. TYLENOL /00020001/ [Concomitant]

REACTIONS (25)
  - Non-cardiac chest pain [Recovered/Resolved]
  - Heart rate increased [Unknown]
  - Hypoaesthesia [Unknown]
  - Arthropathy [Unknown]
  - Back pain [Not Recovered/Not Resolved]
  - Arthritis [Not Recovered/Not Resolved]
  - Gait disturbance [Unknown]
  - Fatigue [Not Recovered/Not Resolved]
  - Obstruction [Unknown]
  - General physical health deterioration [Unknown]
  - Palpitations [Unknown]
  - Anxiety [Unknown]
  - Nervousness [Unknown]
  - Back disorder [Unknown]
  - Sleep disorder [Unknown]
  - Constipation [Not Recovered/Not Resolved]
  - Pain [Unknown]
  - Insomnia [Unknown]
  - Arthralgia [Not Recovered/Not Resolved]
  - Arthralgia [Not Recovered/Not Resolved]
  - Nasopharyngitis [Unknown]
  - Headache [Unknown]
  - Drug dose omission [Unknown]
  - Medication error [Unknown]
  - Drug dose omission [Unknown]
